FAERS Safety Report 7928804-9 (Version None)
Quarter: 2011Q4

REPORT INFORMATION
  Report Type: 
  Country: None (occurrence: None)
  Receive Date: 20111118
  Receipt Date: 20110714
  Transmission Date: 20120403
  Serious: No
  Sender: FDA-Public Use
  Company Number: US-AMGEN-USASP2011034158

PATIENT
  Age: 12 Year
  Sex: Female

DRUGS (3)
  1. METHOTREXATE [Concomitant]
     Dosage: UNK
     Dates: start: 20110101
  2. FOLIC ACID [Concomitant]
     Dosage: UNK
  3. ENBREL [Suspect]
     Indication: JUVENILE ARTHRITIS
     Dosage: 17.5 MG, 2 TIMES/WK
     Route: 058
     Dates: start: 20110601

REACTIONS (6)
  - BLISTER [None]
  - INJECTION SITE HAEMATOMA [None]
  - INJECTION SITE WARMTH [None]
  - INJECTION SITE REACTION [None]
  - INJECTION SITE ERYTHEMA [None]
  - INJECTION SITE SWELLING [None]
